FAERS Safety Report 5491602-2 (Version None)
Quarter: 2007Q4

REPORT INFORMATION
  Report Type: 
  Country: None (occurrence: None)
  Receive Date: 20071019
  Receipt Date: 20071019
  Transmission Date: 20080405
  Serious: Yes (Other)
  Sender: FDA-Public Use
  Company Number: None

PATIENT
  Age: 58 Year
  Sex: Female

DRUGS (1)
  1. LAMISIL [Suspect]
     Dates: start: 20060428, end: 20060517

REACTIONS (7)
  - CHOLESTASIS [None]
  - DRUG TOXICITY [None]
  - HEPATITIS [None]
  - HEPATOTOXICITY [None]
  - LIVER DISORDER [None]
  - LIVER INJURY [None]
  - WEIGHT DECREASED [None]
